FAERS Safety Report 16241897 (Version 3)
Quarter: 2019Q2

REPORT INFORMATION
  Report Type: Spontaneous
  Country: BE (occurrence: BE)
  Receive Date: 20190426
  Receipt Date: 20190528
  Transmission Date: 20190711
  Serious: Yes (Death, Other)
  Sender: FDA-Public Use
  Company Number: BE-AUROBINDO-AUR-APL-2019-022934

PATIENT

DRUGS (4)
  1. VORICONAZOLE. [Interacting]
     Active Substance: VORICONAZOLE
     Indication: ASPERGILLUS INFECTION
  2. VORICONAZOLE. [Suspect]
     Active Substance: VORICONAZOLE
     Indication: PNEUMOCYSTIS JIROVECII INFECTION
     Dosage: UNK
     Route: 065
  3. AMPHOTERICIN-B [Interacting]
     Active Substance: AMPHOTERICIN B
     Indication: PNEUMOCYSTIS JIROVECII INFECTION
  4. AMPHOTERICIN-B [Interacting]
     Active Substance: AMPHOTERICIN B
     Indication: ASPERGILLUS INFECTION
     Dosage: UNK
     Route: 065

REACTIONS (9)
  - Sepsis [Fatal]
  - Haemolysis [Unknown]
  - Inhibitory drug interaction [Fatal]
  - Drug interaction [Unknown]
  - Respiratory failure [Unknown]
  - Drug ineffective [Fatal]
  - Lung infection [Unknown]
  - Thrombocytopenia [Unknown]
  - Renal failure [Unknown]
